FAERS Safety Report 20581991 (Version 2)
Quarter: 2022Q1

REPORT INFORMATION
  Report Type: Spontaneous
  Country: CN (occurrence: None)
  Receive Date: 20220311
  Receipt Date: 20220316
  Transmission Date: 20220423
  Serious: Yes (Hospitalization, Other)
  Sender: FDA-Public Use
  Company Number: 2022A102964

PATIENT
  Sex: Male

DRUGS (2)
  1. DAPAGLIFLOZIN [Suspect]
     Active Substance: DAPAGLIFLOZIN
     Indication: Diabetes mellitus
     Route: 048
     Dates: start: 2021
  2. METFORMIN [Concomitant]
     Active Substance: METFORMIN HYDROCHLORIDE
     Indication: Diabetes mellitus
     Dosage: TWO TABLETS EVERY NIGHT
     Route: 065

REACTIONS (6)
  - Pain [Not Recovered/Not Resolved]
  - Bone formation increased [Unknown]
  - Osteoporosis [Unknown]
  - Intervertebral disc protrusion [Unknown]
  - Nerve compression [Unknown]
  - Pollakiuria [Not Recovered/Not Resolved]
